FAERS Safety Report 6380814-1 (Version None)
Quarter: 2009Q3

REPORT INFORMATION
  Report Type: 
  Country: None (occurrence: None)
  Receive Date: 20090929
  Receipt Date: 20090928
  Transmission Date: 20100115
  Serious: Yes (Hospitalization)
  Sender: FDA-Public Use
  Company Number: JP-EISAI INC.-E2020-05146-SPO-JP

PATIENT
  Age: 74 Year
  Sex: Male
  Weight: 55 kg

DRUGS (1)
  1. ARICEPT [Suspect]
     Indication: DEMENTIA ALZHEIMER'S TYPE
     Route: 048
     Dates: start: 20090630, end: 20090818

REACTIONS (1)
  - RHABDOMYOLYSIS [None]
